FAERS Safety Report 9819378 (Version 3)
Quarter: 2014Q2

REPORT INFORMATION
  Report Type: Spontaneous
  Country: US (occurrence: US)
  Receive Date: 20140115
  Receipt Date: 20140430
  Transmission Date: 20141212
  Serious: Yes (Hospitalization, Other)
  Sender: FDA-Public Use
  Company Number: US-ASTRAZENECA-2014SE01594

PATIENT
  Age: 64 Year
  Sex: Female
  Weight: 109.8 kg

DRUGS (15)
  1. ARIMIDEX [Suspect]
     Indication: BREAST CANCER FEMALE
     Route: 048
     Dates: start: 201111, end: 201310
  2. TAMOXIFEN [Suspect]
     Indication: BREAST CANCER FEMALE
     Dosage: UNKNOWN DOSE AND FREQUENCY
     Route: 048
     Dates: start: 1992, end: 1997
  3. LASIX [Concomitant]
     Indication: NEPHRITIS AUTOIMMUNE
     Route: 048
     Dates: start: 1989
  4. COUMADIN [Concomitant]
     Indication: PULMONARY EMBOLISM
     Route: 048
  5. COUMADIN [Concomitant]
     Indication: PULMONARY EMBOLISM
     Route: 048
     Dates: start: 2013
  6. GABAPENTIN [Concomitant]
     Indication: NEUROPATHY PERIPHERAL
     Route: 048
     Dates: start: 2011
  7. AMILORIDE [Concomitant]
     Indication: RENAL DISORDER
     Route: 048
     Dates: start: 1989
  8. METHOTREXATE [Concomitant]
     Indication: ARTHRITIS
     Route: 048
     Dates: start: 2010
  9. FOLIC ACID [Concomitant]
     Indication: VITAMIN SUPPLEMENTATION
     Route: 048
     Dates: start: 2010
  10. ASPIRIN [Concomitant]
     Indication: DEEP VEIN THROMBOSIS
     Route: 048
     Dates: start: 2011
  11. PRAVASTATIN [Concomitant]
     Indication: BLOOD CHOLESTEROL ABNORMAL
     Route: 048
     Dates: start: 2008
  12. PREDNISONE [Concomitant]
     Indication: IMMUNE SYSTEM DISORDER
     Route: 048
     Dates: start: 2013
  13. PROZAC [Concomitant]
     Indication: DEPRESSION
     Route: 048
     Dates: start: 2011
  14. RESTORIL [Concomitant]
     Indication: SLEEP DISORDER
     Dosage: ONCE A WEEK AS NEEDED FOR SLEEP FOR THE PAST 10 TO FIFTEEN YEARS
     Route: 048
  15. TRIAMPHENOLINE [Concomitant]

REACTIONS (24)
  - Thrombosis [Unknown]
  - Breast cancer recurrent [Unknown]
  - Activities of daily living impaired [Unknown]
  - Dehydration [Unknown]
  - Feeling abnormal [Unknown]
  - Rotator cuff syndrome [Unknown]
  - Deep vein thrombosis [Unknown]
  - Dermatitis exfoliative [Recovered/Resolved]
  - Pulmonary thrombosis [Unknown]
  - Menopausal symptoms [Unknown]
  - Aphagia [Recovered/Resolved]
  - Weight decreased [Unknown]
  - Herpes zoster [Unknown]
  - Adverse event [Unknown]
  - Impaired work ability [Unknown]
  - Gait disturbance [Recovered/Resolved]
  - Fatigue [Recovering/Resolving]
  - Asthenia [Recovering/Resolving]
  - Nausea [Unknown]
  - Vomiting [Unknown]
  - Diarrhoea [Unknown]
  - Retching [Unknown]
  - Fatigue [Recovering/Resolving]
  - Intentional product misuse [Unknown]
